FAERS Safety Report 8430388 (Version 4)
Quarter: 2013Q2

REPORT INFORMATION
  Report Type: Spontaneous
  Country: US (occurrence: US)
  Receive Date: 20120228
  Receipt Date: 20130408
  Transmission Date: 20140414
  Serious: Yes (Hospitalization)
  Sender: FDA-Public Use
  Company Number: US-BAYER-2012-017394

PATIENT
  Age: 29 Year
  Sex: Female
  Weight: 83.9 kg

DRUGS (10)
  1. YAZ [Suspect]
     Indication: ACNE
     Dosage: UNK
     Dates: start: 200908, end: 201002
  2. GIANVI [Suspect]
     Indication: ACNE
     Dosage: UNK
     Dates: start: 201006, end: 201007
  3. CIPROFLOXACIN [Concomitant]
     Dosage: 500 MG, UNK
  4. CYCLOBENZAPRINE [Concomitant]
     Dosage: 10 MG, UNK
  5. ASPIRIN [Concomitant]
     Indication: HEADACHE
     Dosage: 81 MG, DAILY.
  6. TYLENOL [Concomitant]
     Indication: HEADACHE
     Dosage: EVERY 6 HOURS AS NEEDED
  7. IBUPROFEN [Concomitant]
     Indication: HEADACHE
  8. EXCEDRIN MIGRAINE [Concomitant]
     Indication: HEADACHE
  9. PEPCID [Concomitant]
  10. FOLTX [Concomitant]
     Dosage: ONE TWICE A DAY

REACTIONS (6)
  - Intracranial venous sinus thrombosis [Recovering/Resolving]
  - Pain [None]
  - Intracranial venous sinus thrombosis [None]
  - Jugular vein thrombosis [None]
  - Mental disorder [None]
  - Depression [None]
